FAERS Safety Report 12169100 (Version 2)
Quarter: 2016Q1

REPORT INFORMATION
  Report Type: Spontaneous
  Country: DE (occurrence: DE)
  Receive Date: 20160310
  Receipt Date: 20160322
  Transmission Date: 20160526
  Serious: Yes (Other)
  Sender: FDA-Public Use
  Company Number: GXKR2016DE001265

PATIENT
  Age: 68 Year
  Sex: Male

DRUGS (1)
  1. AMLODIPIN 1A PHARMA N [Suspect]
     Active Substance: AMLODIPINE BESYLATE
     Indication: HYPERTENSION
     Dosage: 5 MG, QD
     Route: 048
     Dates: start: 2014, end: 20160226

REACTIONS (6)
  - Renal pain [Recovering/Resolving]
  - Dysuria [Recovering/Resolving]
  - Urinary retention [Recovering/Resolving]
  - Tinnitus [Recovering/Resolving]
  - Constipation [Unknown]
  - Paraesthesia [Recovered/Resolved]
